FAERS Safety Report 7756843-X (Version None)
Quarter: 2011Q3

REPORT INFORMATION
  Report Type: 
  Country: None (occurrence: None)
  Receive Date: 20110916
  Receipt Date: 20110913
  Transmission Date: 20111222
  Serious: Yes (Death)
  Sender: FDA-Public Use
  Company Number: DE-ROCHE-802428

PATIENT
  Age: 84 Year
  Sex: Female
  Weight: 55 kg

DRUGS (1)
  1. IBANDRONATE SODIUM [Suspect]
     Route: 042
     Dates: start: 20100318

REACTIONS (1)
  - DEATH [None]
